FAERS Safety Report 6941349-8 (Version None)
Quarter: 2010Q3

REPORT INFORMATION
  Report Type: 
  Country: None (occurrence: None)
  Receive Date: 20100825
  Receipt Date: 20100811
  Transmission Date: 20110219
  Serious: Yes (Other)
  Sender: FDA-Public Use
  Company Number: PHHY2009AU32603

PATIENT
  Sex: Female

DRUGS (1)
  1. ZOLEDRONIC [Suspect]
     Dosage: UNK
     Dates: start: 20090713

REACTIONS (11)
  - ASTHENIA [None]
  - BEDRIDDEN [None]
  - FEELING OF BODY TEMPERATURE CHANGE [None]
  - HYPOAESTHESIA ORAL [None]
  - INFLUENZA LIKE ILLNESS [None]
  - LETHARGY [None]
  - LOOSE TOOTH [None]
  - MYALGIA [None]
  - OSTEOPOROSIS [None]
  - PALPITATIONS [None]
  - PYREXIA [None]
